FAERS Safety Report 4826735-4 (Version None)
Quarter: 2005Q4

REPORT INFORMATION
  Report Type: 
  Country: None (occurrence: None)
  Receive Date: 20051111
  Receipt Date: 20051111
  Transmission Date: 20060501
  Serious: Yes (Hospitalization)
  Sender: FDA-Public Use
  Company Number: None

PATIENT
  Age: 14 Year
  Sex: Male
  Weight: 60.782 kg

DRUGS (1)
  1. BACTRIM [Suspect]
     Indication: ACNE
     Dosage: 1 PILL   TWICE DAILY  PO
     Route: 048
     Dates: start: 20051024, end: 20051031

REACTIONS (1)
  - STEVENS-JOHNSON SYNDROME [None]
